FAERS Safety Report 8463766-X (Version None)
Quarter: 2012Q2

REPORT INFORMATION
  Report Type: 
  Country: None (occurrence: None)
  Receive Date: 20120625
  Receipt Date: 20120614
  Transmission Date: 20120825
  Serious: Yes (Other)
  Sender: FDA-Public Use
  Company Number: US-SHIONOGI, INC-2012000175

PATIENT

DRUGS (6)
  1. PERMETHRIN [Concomitant]
     Dosage: UNK
     Dates: start: 20120501
  2. ULESFIA [Suspect]
     Indication: LICE INFESTATION
     Dosage: ONE AND ONE-HALF 8-OUNCE BOTTLE
     Route: 061
     Dates: start: 20120514, end: 20120514
  3. MULTI-VITAMIN [Concomitant]
  4. ORAL CONTRACEPTIVE NOS [Concomitant]
  5. TEA TREE OIL [Concomitant]
     Dosage: UNK
     Dates: start: 20120501
  6. OLIVE OIL [Concomitant]
     Dosage: UNK
     Dates: start: 20120501

REACTIONS (8)
  - PALPITATIONS [None]
  - HYPOAESTHESIA [None]
  - PARAESTHESIA [None]
  - ABNORMAL DREAMS [None]
  - DYSPNOEA [None]
  - CHEST PAIN [None]
  - SLUGGISHNESS [None]
  - FEELING ABNORMAL [None]
